FAERS Safety Report 5227864-6 (Version None)
Quarter: 2007Q1

REPORT INFORMATION
  Report Type: 
  Country: None (occurrence: None)
  Receive Date: 20070202
  Receipt Date: 20070125
  Transmission Date: 20070707
  Serious: Yes (Death)
  Sender: FDA-Public Use
  Company Number: AT-ABBOTT-07P-009-0357176-00

PATIENT
  Age: 72 Year
  Sex: Female
  Weight: 118 kg

DRUGS (9)
  1. ZEMPLAR [Suspect]
     Indication: HYPERPARATHYROIDISM SECONDARY
     Dates: start: 20060502, end: 20060713
  2. ZEMPLAR [Suspect]
     Indication: RENAL FAILURE CHRONIC
     Dates: start: 20060714, end: 20060809
  3. ZEMPLAR [Suspect]
     Dates: start: 20060810, end: 20060917
  4. ZEMPLAR [Suspect]
     Dates: start: 20060918, end: 20060921
  5. DIGIMERK [Concomitant]
     Indication: CARDIAC FAILURE
     Route: 048
  6. CLOPIDOGREL BISULFATE [Concomitant]
     Indication: CARDIAC FAILURE CONGESTIVE
     Route: 048
  7. PANTOPRAZOLE SODIUM [Concomitant]
     Indication: GASTRITIS
     Route: 048
  8. INSULIN ISOPHANE HUMAN SEMISYNTHETIC [Concomitant]
     Indication: DIABETES MELLITUS NON-INSULIN-DEPENDENT
     Route: 058
  9. INSULIN LISPRO [Concomitant]
     Indication: DIABETES MELLITUS NON-INSULIN-DEPENDENT
     Route: 058

REACTIONS (1)
  - ACUTE MYOCARDIAL INFARCTION [None]
